FAERS Safety Report 9981245 (Version 1)
Quarter: 2014Q1

REPORT INFORMATION
  Report Type: Spontaneous
  Country: US (occurrence: None)
  Receive Date: 20140306
  Receipt Date: 20140306
  Transmission Date: 20141002
  Serious: Yes (Other)
  Sender: FDA-Public Use
  Company Number: None

PATIENT
  Age: 71 Year
  Sex: Male
  Weight: 111.13 kg

DRUGS (1)
  1. ATORVASTATIN [Suspect]
     Indication: LOW DENSITY LIPOPROTEIN INCREASED
     Dosage: 1 PILL DAILY
     Route: 048
     Dates: start: 20140226, end: 20140305

REACTIONS (3)
  - Malaise [None]
  - Asthenia [None]
  - Fatigue [None]
